FAERS Safety Report 11045074 (Version 2)
Quarter: 2015Q2

REPORT INFORMATION
  Report Type: Other
  Country: TR (occurrence: TR)
  Receive Date: 20150417
  Receipt Date: 20150507
  Transmission Date: 20150821
  Serious: Yes (Disabling)
  Sender: FDA-Public Use
  Company Number: TR-EMD SERONO-8020586

PATIENT
  Age: 33 Year
  Sex: Female

DRUGS (1)
  1. CLOMIPHENE CITRATE. [Suspect]
     Active Substance: CLOMIPHENE CITRATE
     Indication: INFERTILITY

REACTIONS (3)
  - Headache [Recovered/Resolved]
  - Macular degeneration [Not Recovered/Not Resolved]
  - Incorrect drug administration duration [Recovered/Resolved]
